FAERS Safety Report 20532351 (Version 3)
Quarter: 2022Q2

REPORT INFORMATION
  Report Type: Spontaneous
  Country: JP (occurrence: None)
  Receive Date: 20220301
  Receipt Date: 20220421
  Transmission Date: 20220721
  Serious: Yes (Hospitalization, Other)
  Sender: FDA-Public Use
  Company Number: 2022A087817

PATIENT
  Age: 62 Year
  Sex: Male
  Weight: 49 kg

DRUGS (13)
  1. IMFINZI [Suspect]
     Active Substance: DURVALUMAB
     Indication: Small cell lung cancer
     Route: 041
     Dates: start: 20210526, end: 20211022
  2. IMFINZI [Suspect]
     Active Substance: DURVALUMAB
     Indication: Small cell lung cancer
     Route: 041
     Dates: start: 2021, end: 2021
  3. CISPLATIN [Concomitant]
     Active Substance: CISPLATIN
     Indication: Small cell lung cancer
     Dosage: DOSE UNKNOWN
     Route: 065
     Dates: start: 20210526, end: 20211022
  4. ETOPOSIDE [Concomitant]
     Active Substance: ETOPOSIDE
     Indication: Small cell lung cancer
     Dosage: DOSE UNKNOWN, ON DAY 1, 2 AND 3 OF EACH CYCLE
     Route: 065
     Dates: start: 20210526, end: 20211024
  5. AMLODIPINE [Concomitant]
     Active Substance: AMLODIPINE BESYLATE
     Dosage: DOSE UNKNOWN
     Route: 048
  6. FEBUXOSTAT [Concomitant]
     Active Substance: FEBUXOSTAT
     Dosage: DOSE UNKNOWN
     Route: 048
  7. ASPIRIN [Concomitant]
     Active Substance: ASPIRIN
     Dosage: DOSE UNKNOWN
     Route: 048
  8. ICOSAPENT ETHYL [Concomitant]
     Active Substance: ICOSAPENT ETHYL
     Dosage: DOSE UNKNOWN
     Route: 048
  9. LANSOPRAZOLE [Concomitant]
     Active Substance: LANSOPRAZOLE
     Dosage: DOSE UNKNOWN
     Route: 048
  10. MAGNESIUM OXIDE [Concomitant]
     Active Substance: MAGNESIUM OXIDE
     Dosage: DOSE UNKNOWN
     Route: 048
  11. PANTETHINE [Concomitant]
     Active Substance: PANTETHINE
     Dosage: DOSE UNKNOWN
     Route: 048
  12. SAMSCA [Concomitant]
     Active Substance: TOLVAPTAN
     Dosage: DOSE UNKNOWN
     Route: 048
  13. AMITIZA [Concomitant]
     Active Substance: LUBIPROSTONE
     Dosage: DOSE UNKNOWN
     Route: 048

REACTIONS (2)
  - Immune thrombocytopenia [Recovered/Resolved]
  - Haemophagocytic lymphohistiocytosis [Unknown]

NARRATIVE: CASE EVENT DATE: 20211119
